FAERS Safety Report 10623490 (Version 4)
Quarter: 2015Q2

REPORT INFORMATION
  Report Type: Spontaneous
  Country: US (occurrence: US)
  Receive Date: 20141203
  Receipt Date: 20150519
  Transmission Date: 20150821
  Serious: Yes (Hospitalization)
  Sender: FDA-Public Use
  Company Number: US-BAYER-2014-178087

PATIENT
  Age: 26 Year
  Sex: Female
  Weight: 63.49 kg

DRUGS (3)
  1. SYMBICORT [Concomitant]
     Active Substance: BUDESONIDE\FORMOTEROL FUMARATE DIHYDRATE
     Dosage: UNK
     Dates: start: 2004, end: 2014
  2. NASACORT [Concomitant]
     Active Substance: TRIAMCINOLONE ACETONIDE
     Dosage: UNK
     Dates: start: 2004, end: 2014
  3. MIRENA [Suspect]
     Active Substance: LEVONORGESTREL
     Indication: MENORRHAGIA
     Dosage: 20 MCG/24HR, CONT
     Route: 015
     Dates: start: 20081210, end: 20100111

REACTIONS (7)
  - Pain [None]
  - Menometrorrhagia [None]
  - Device difficult to use [None]
  - Dysmenorrhoea [None]
  - Injury [None]
  - Product use issue [None]
  - Uterine perforation [None]

NARRATIVE: CASE EVENT DATE: 2009
